FAERS Safety Report 8371998-4 (Version None)
Quarter: 2012Q2

REPORT INFORMATION
  Report Type: 
  Country: None (occurrence: None)
  Receive Date: 20120518
  Receipt Date: 20120507
  Transmission Date: 20120825
  Serious: Yes (Other)
  Sender: FDA-Public Use
  Company Number: TR-ROCHE-1066636

PATIENT
  Age: 58 Year
  Sex: Female

DRUGS (3)
  1. ENBREL [Suspect]
     Route: 058
     Dates: start: 20081215, end: 20111210
  2. ENBREL [Suspect]
     Indication: RHEUMATOID ARTHRITIS
     Route: 058
     Dates: start: 20110526, end: 20111210
  3. MABTHERA [Suspect]
     Indication: ANKYLOSING SPONDYLITIS
     Dates: start: 20120301

REACTIONS (8)
  - PHLEBITIS INFECTIVE [None]
  - EYE PAIN [None]
  - VERTIGO [None]
  - ANAEMIA [None]
  - TACHYCARDIA [None]
  - URINARY TRACT INFECTION [None]
  - FEELING ABNORMAL [None]
  - ASTHENIA [None]
